FAERS Safety Report 15797102 (Version 1)
Quarter: 2019Q1

REPORT INFORMATION
  Report Type: Spontaneous
  Country: US (occurrence: US)
  Receive Date: 20190108
  Receipt Date: 20190108
  Transmission Date: 20190417
  Serious: No
  Sender: FDA-Public Use
  Company Number: US-AUROBINDO-AUR-APU-2018-020424

PATIENT

DRUGS (1)
  1. DEXTROAMPHET SACCHARAT, AMPHET ASPARTATE, DEXTROAMPHET SULFATE AND AMPHET SULFAT [Suspect]
     Active Substance: AMPHETAMINE ASPARTATE\AMPHETAMINE SULFATE\DEXTROAMPHETAMINE SACCHARATE\DEXTROAMPHETAMINE SULFATE
     Indication: PRODUCT USED FOR UNKNOWN INDICATION
     Dosage: UNK
     Route: 065

REACTIONS (18)
  - Adverse drug reaction [Unknown]
  - Disturbance in attention [Unknown]
  - Anxiety [Unknown]
  - Drug effect variable [Unknown]
  - Heart rate increased [Unknown]
  - Bruxism [Unknown]
  - Muscle twitching [Unknown]
  - Paranoia [Unknown]
  - Fatigue [Unknown]
  - Feeling jittery [Unknown]
  - Agitation [Unknown]
  - Asthenia [Unknown]
  - Hypertension [Unknown]
  - Feeling abnormal [Unknown]
  - Dyskinesia [Unknown]
  - Depression [Unknown]
  - Stomatitis [Unknown]
  - Mania [Unknown]
